FAERS Safety Report 18677127 (Version 1)
Quarter: 2020Q4

REPORT INFORMATION
  Report Type: Spontaneous
  Country: CZ (occurrence: CZ)
  Receive Date: 20201229
  Receipt Date: 20201229
  Transmission Date: 20210114
  Serious: Yes (Hospitalization, Other)
  Sender: FDA-Public Use
  Company Number: CZ-MYLANLABS-2020M1104331

PATIENT
  Sex: Female

DRUGS (5)
  1. IBALGIN [Suspect]
     Active Substance: IBUPROFEN
     Indication: ANALGESIC INTERVENTION SUPPORTIVE THERAPY
     Dosage: UNK
  2. OXAZEPAM. [Suspect]
     Active Substance: OXAZEPAM
     Indication: ANXIETY
     Dosage: UNK
  3. HYPNOGEN [Suspect]
     Active Substance: ZOLPIDEM TARTRATE
     Indication: INSOMNIA
     Dosage: UNK
  4. TRAMADOL. [Suspect]
     Active Substance: TRAMADOL
     Indication: PAIN
     Dosage: UNK
  5. STILNOX [Suspect]
     Active Substance: ZOLPIDEM TARTRATE
     Indication: INSOMNIA
     Dosage: UNK

REACTIONS (15)
  - Fall [Recovered/Resolved]
  - Poor quality sleep [Recovered/Resolved]
  - Condition aggravated [Recovered/Resolved]
  - Restlessness [Recovered/Resolved]
  - Anxiety [Recovered/Resolved]
  - Product use issue [Recovered/Resolved]
  - Pelvic fracture [Recovered/Resolved]
  - Cognitive disorder [Recovered/Resolved]
  - Foreign body [Recovered/Resolved]
  - Dizziness [Recovered/Resolved]
  - Prescription drug used without a prescription [Unknown]
  - Deafness [Recovered/Resolved]
  - Hypoacusis [Recovered/Resolved]
  - Self-medication [Recovered/Resolved]
  - Contusion [Recovered/Resolved]
